FAERS Safety Report 4780722-3 (Version None)
Quarter: 2005Q3

REPORT INFORMATION
  Report Type: 
  Country: None (occurrence: None)
  Receive Date: 20050926
  Receipt Date: 20050916
  Transmission Date: 20060218
  Serious: Yes (Death, Hospitalization)
  Sender: FDA-Public Use
  Company Number: TCI2005A02421

PATIENT
  Age: 61 Year
  Sex: Male

DRUGS (12)
  1. ACTOS [Suspect]
     Indication: DIABETES MELLITUS NON-INSULIN-DEPENDENT
     Dosage: 30  MG (15 MG, 2 IN 1 D) PER ORAL
     Route: 048
     Dates: start: 20050408, end: 20050507
  2. HALOPERIDOL [Concomitant]
  3. CHLORPROMAZINE HCL [Concomitant]
  4. NITRAZEPAM [Concomitant]
  5. ARTANE [Concomitant]
  6. ASPIRIN [Concomitant]
  7. LOSARTAN POTASSIUM [Concomitant]
  8. DILTIAZEM HYDROCHLORIDE [Concomitant]
  9. GLIMICORN (GLICLAZIDE) [Concomitant]
  10. TENORMIN [Concomitant]
  11. LIPITOR [Concomitant]
  12. SINLESTAL (PROBUCOL) [Concomitant]

REACTIONS (55)
  - ABDOMINAL DISTENSION [None]
  - ALANINE AMINOTRANSFERASE INCREASED [None]
  - ARRHYTHMIA [None]
  - ASPARTATE AMINOTRANSFERASE INCREASED [None]
  - BACTERIA SPUTUM IDENTIFIED [None]
  - BACTERIAL INFECTION [None]
  - BASE EXCESS DECREASED [None]
  - BASE EXCESS INCREASED [None]
  - BLOOD BICARBONATE INCREASED [None]
  - BLOOD CHLORIDE INCREASED [None]
  - BLOOD GLUCOSE DECREASED [None]
  - BLOOD GLUCOSE INCREASED [None]
  - BLOOD LACTATE DEHYDROGENASE INCREASED [None]
  - BLOOD PH DECREASED [None]
  - BLOOD PH INCREASED [None]
  - BLOOD POTASSIUM DECREASED [None]
  - BLOOD POTASSIUM INCREASED [None]
  - BLOOD PRESSURE DECREASED [None]
  - BRONCHITIS [None]
  - CARDIAC ARREST [None]
  - CHRONIC OBSTRUCTIVE PULMONARY DISEASE [None]
  - CYANOSIS [None]
  - DEHYDRATION [None]
  - DYSPNOEA [None]
  - EMPHYSEMA [None]
  - GENERALISED OEDEMA [None]
  - GLYCOSYLATED HAEMOGLOBIN INCREASED [None]
  - HAEMODIALYSIS [None]
  - HEART RATE DECREASED [None]
  - HYPERNATRAEMIA [None]
  - HYPOVENTILATION [None]
  - INFLAMMATION [None]
  - METABOLIC ACIDOSIS [None]
  - MULTI-ORGAN FAILURE [None]
  - OXYGEN SATURATION DECREASED [None]
  - PALLOR [None]
  - PALPITATIONS [None]
  - PCO2 INCREASED [None]
  - PERIPHERAL COLDNESS [None]
  - PITTING OEDEMA [None]
  - PLATELET COUNT DECREASED [None]
  - PO2 DECREASED [None]
  - PO2 INCREASED [None]
  - POLYURIA [None]
  - PROTHROMBIN TIME PROLONGED [None]
  - RALES [None]
  - RENAL FAILURE ACUTE [None]
  - RESPIRATORY FAILURE [None]
  - RESPIRATORY GAS EXCHANGE DISORDER [None]
  - RHABDOMYOLYSIS [None]
  - SEPTIC SHOCK [None]
  - TACHYCARDIA [None]
  - TACHYPNOEA [None]
  - TREATMENT NONCOMPLIANCE [None]
  - WHITE BLOOD CELL COUNT INCREASED [None]
